FAERS Safety Report 9951574 (Version 1)
Quarter: 2014Q1

REPORT INFORMATION
  Report Type: Report from Study
  Country: US (occurrence: US)
  Receive Date: 20140304
  Receipt Date: 20140304
  Transmission Date: 20141002
  Serious: No
  Sender: FDA-Public Use
  Company Number: US-ABBVIE-13P-163-1071476-00

PATIENT
  Sex: Male
  Weight: 108.96 kg

DRUGS (2)
  1. HUMIRA [Suspect]
     Indication: PSORIASIS
     Dates: start: 2012, end: 2012
  2. HUMIRA [Suspect]
     Dosage: STARTED ONE WEEK AFTER INITIAL DOSE.
     Dates: start: 2012, end: 201209

REACTIONS (3)
  - Hepatic enzyme increased [Recovered/Resolved]
  - Ligament rupture [Recovered/Resolved]
  - Tendon injury [Recovered/Resolved]
